FAERS Safety Report 13912991 (Version 4)
Quarter: 2018Q3

REPORT INFORMATION
  Report Type: Spontaneous
  Country: US (occurrence: US)
  Receive Date: 20170828
  Receipt Date: 20180913
  Transmission Date: 20181010
  Serious: No
  Sender: FDA-Public Use
  Company Number: US-ACTELION-A-NJ2017-158644

PATIENT
  Age: 64 Year
  Sex: Female
  Weight: 70.75 kg

DRUGS (7)
  1. UPTRAVI [Suspect]
     Active Substance: SELEXIPAG
     Dosage: 1000 MCG, BID
     Route: 048
  2. SILDENAFIL CITRATE. [Concomitant]
     Active Substance: SILDENAFIL CITRATE
  3. LETAIRIS [Concomitant]
     Active Substance: AMBRISENTAN
  4. UPTRAVI [Suspect]
     Active Substance: SELEXIPAG
     Dosage: 200 MCG, BID
     Route: 048
     Dates: start: 20170728
  5. UPTRAVI [Suspect]
     Active Substance: SELEXIPAG
     Dosage: 1200 MCG, BID
     Route: 048
  6. UPTRAVI [Suspect]
     Active Substance: SELEXIPAG
     Indication: PULMONARY ARTERIAL HYPERTENSION
     Dosage: 600 MCG, BID
     Route: 048
  7. UPTRAVI [Suspect]
     Active Substance: SELEXIPAG
     Dosage: 800 MCG, BID
     Route: 048

REACTIONS (15)
  - Depressed mood [Recovering/Resolving]
  - Nasal congestion [Unknown]
  - Anxiety [Unknown]
  - Scab [Unknown]
  - Headache [Recovering/Resolving]
  - Weight decreased [Unknown]
  - Hypotension [Unknown]
  - Nasopharyngitis [Unknown]
  - Pain in jaw [Recovering/Resolving]
  - Heart rate decreased [Unknown]
  - Pulmonary congestion [Unknown]
  - Dyspnoea [Unknown]
  - Pain [Recovering/Resolving]
  - Rash [Recovering/Resolving]
  - Arthralgia [Unknown]

NARRATIVE: CASE EVENT DATE: 20180514
